FAERS Safety Report 4346372-8 (Version None)
Quarter: 2004Q2

REPORT INFORMATION
  Report Type: 
  Country: None (occurrence: None)
  Receive Date: 20040426
  Receipt Date: 20030326
  Transmission Date: 20050107
  Serious: No
  Sender: FDA-Public Use
  Company Number: US-GLAXOSMITHKLINE-A0401977A

PATIENT
  Sex: Female

DRUGS (4)
  1. ZOFRAN [Suspect]
     Indication: NAUSEA
     Dosage: 8MG PER DAY
     Route: 048
     Dates: start: 20030318, end: 20030318
  2. TAXOL [Concomitant]
     Route: 042
     Dates: start: 20030315, end: 20030315
  3. ZOFRAN [Concomitant]
     Route: 042
     Dates: start: 20030315, end: 20030315
  4. CARBOPLATIN [Concomitant]
     Route: 042
     Dates: start: 20030315, end: 20030315

REACTIONS (3)
  - ANOREXIA [None]
  - HYPERSOMNIA [None]
  - SEDATION [None]
